FAERS Safety Report 24398533 (Version 1)
Quarter: 2024Q4

REPORT INFORMATION
  Report Type: Report from Study
  Country: US (occurrence: US)
  Receive Date: 20241004
  Receipt Date: 20241004
  Transmission Date: 20250114
  Serious: Yes (Death)
  Sender: BAUSCH AND LOMB
  Company Number: US-BAUSCH-BL-2024-014855

PATIENT
  Age: 95 Year
  Sex: Male

DRUGS (1)
  1. XIFAXAN [Suspect]
     Active Substance: RIFAXIMIN
     Indication: Hepatic encephalopathy
     Dosage: DURATION 30 MONTHS
     Route: 048

REACTIONS (2)
  - Death [Fatal]
  - Living in residential institution [Unknown]

NARRATIVE: CASE EVENT DATE: 20240801
